FAERS Safety Report 17734848 (Version 2)
Quarter: 2021Q2

REPORT INFORMATION
  Report Type: Spontaneous
  Country: US (occurrence: US)
  Receive Date: 20200501
  Receipt Date: 20210611
  Transmission Date: 20210716
  Serious: Yes (Other)
  Sender: FDA-Public Use
  Company Number: US-ASTRAZENECA-2020SE55420

PATIENT
  Age: 20967 Day
  Sex: Female
  Weight: 83.9 kg

DRUGS (68)
  1. PROTONIX [Suspect]
     Active Substance: PANTOPRAZOLE SODIUM
     Indication: GASTROOESOPHAGEAL REFLUX DISEASE
     Route: 065
     Dates: start: 2012, end: 2016
  2. CYCLOBENZAPRINE. [Concomitant]
     Active Substance: CYCLOBENZAPRINE
  3. PREDNISONE. [Concomitant]
     Active Substance: PREDNISONE
  4. KLOR?CON [Concomitant]
     Active Substance: POTASSIUM CHLORIDE
  5. METOPROLOL TARTRATE. [Concomitant]
     Active Substance: METOPROLOL TARTRATE
  6. SODIUM CHLORIDE. [Concomitant]
     Active Substance: SODIUM CHLORIDE
  7. HEPARIN [Concomitant]
     Active Substance: HEPARIN SODIUM
  8. IODINE. [Concomitant]
     Active Substance: IODINE
  9. TUMS [Concomitant]
     Active Substance: CALCIUM CARBONATE
  10. ACETYLSALICYLIC ACID/METHOCARBAMOL [Concomitant]
     Active Substance: ASPIRIN\METHOCARBAMOL
  11. SUMA [Concomitant]
  12. HYDROCODONE/PARACETAMOL [Concomitant]
     Active Substance: ACETAMINOPHEN\HYDROCODONE BITARTRATE
  13. MORPHINE SULFATE. [Concomitant]
     Active Substance: MORPHINE SULFATE
  14. LACTULOSE. [Concomitant]
     Active Substance: LACTULOSE
  15. PRILOSEC [Suspect]
     Active Substance: OMEPRAZOLE MAGNESIUM
     Indication: GASTROOESOPHAGEAL REFLUX DISEASE
     Route: 048
     Dates: start: 201201, end: 201602
  16. PROTONIX [Suspect]
     Active Substance: PANTOPRAZOLE SODIUM
     Indication: GASTROOESOPHAGEAL REFLUX DISEASE
     Route: 065
     Dates: start: 201201, end: 201602
  17. METOPROLOL. [Concomitant]
     Active Substance: METOPROLOL
     Indication: HYPERTENSION
  18. IBUPROFEN. [Concomitant]
     Active Substance: IBUPROFEN
     Indication: THYROID DISORDER
  19. CERON [Concomitant]
     Active Substance: CHLORPHENIRAMINE MALEATE\PHENYLEPHRINE HYDROCHLORIDE
  20. AMLODIPINE [Concomitant]
     Active Substance: AMLODIPINE BESYLATE
  21. SIMVASTATIN. [Concomitant]
     Active Substance: SIMVASTATIN
  22. PENUMONOVAX [Concomitant]
  23. MENTHOL. [Concomitant]
     Active Substance: MENTHOL
  24. VITAMIN C [Concomitant]
     Active Substance: ASCORBIC ACID
  25. VITAMIN B12 [Concomitant]
     Active Substance: CYANOCOBALAMIN
  26. CIPROFLOXACIN. [Concomitant]
     Active Substance: CIPROFLOXACIN
  27. SYNTHROID [Concomitant]
     Active Substance: LEVOTHYROXINE SODIUM
  28. FENTANYL. [Concomitant]
     Active Substance: FENTANYL
  29. PENICILLINE [Concomitant]
     Active Substance: PENICILLIN G
  30. BROMAZINE HYDROCHLORIDE/DIPHENHYDRAMINE HYDROCHLORIDE/HYDROCODONE BITARTRATE/AMMONIUM CHLORIDE/SULFO [Concomitant]
  31. ZOSTER [Concomitant]
  32. ONDANSETRON [Concomitant]
     Active Substance: ONDANSETRON
  33. SULFA [Concomitant]
     Active Substance: UNSPECIFIED INGREDIENT
  34. SENNA [Concomitant]
     Active Substance: SENNA LEAF\SENNOSIDES\SENNOSIDES A AND B
  35. HALDOL [Concomitant]
     Active Substance: HALOPERIDOL
  36. DEMEROL [Concomitant]
     Active Substance: MEPERIDINE HYDROCHLORIDE
  37. LOSARTAN POTASSIUM. [Concomitant]
     Active Substance: LOSARTAN POTASSIUM
  38. DIOVAN [Concomitant]
     Active Substance: VALSARTAN
  39. FLAGYL [Concomitant]
     Active Substance: METRONIDAZOLE\METRONIDAZOLE HYDROCHLORIDE
  40. AZACTAM [Concomitant]
     Active Substance: AZTREONAM
  41. DOCUSATE SODIUM. [Concomitant]
     Active Substance: DOCUSATE SODIUM
  42. ESCIN\LEVOTHYROXINE [Concomitant]
     Active Substance: ESCIN\LEVOTHYROXINE
     Indication: THYROID DISORDER
  43. RANITIDINE. [Concomitant]
     Active Substance: RANITIDINE
  44. ORPHENADRINE [Concomitant]
     Active Substance: ORPHENADRINE
  45. CODEINE PHOSPHATE/BUTALBITAL/PARACETAMOL/CAFFEINE [Concomitant]
  46. GABAPENTIN. [Concomitant]
     Active Substance: GABAPENTIN
  47. IIOHEXOL [Concomitant]
  48. QUETIAPINE. [Concomitant]
     Active Substance: QUETIAPINE
  49. OXYGEN. [Concomitant]
     Active Substance: OXYGEN
  50. SODIUM BICARBONATE. [Concomitant]
     Active Substance: SODIUM BICARBONATE
  51. TRAMADOL. [Concomitant]
     Active Substance: TRAMADOL
     Indication: PAIN
  52. VALACYCLOVIR [Concomitant]
     Active Substance: VALACYCLOVIR HYDROCHLORIDE
  53. MELATONIN [Concomitant]
     Active Substance: MELATONIN
  54. HYDROMET [Concomitant]
     Active Substance: HOMATROPINE METHYLBROMIDE\HYDROCODONE BITARTRATE
  55. PRILOSEC [Suspect]
     Active Substance: OMEPRAZOLE MAGNESIUM
     Indication: GASTROOESOPHAGEAL REFLUX DISEASE
     Route: 048
     Dates: start: 2012, end: 2016
  56. PRILOSEC OTC [Suspect]
     Active Substance: OMEPRAZOLE MAGNESIUM
     Indication: GASTROOESOPHAGEAL REFLUX DISEASE
     Route: 048
     Dates: start: 2012, end: 2016
  57. NEXIUM [Suspect]
     Active Substance: ESOMEPRAZOLE MAGNESIUM
     Indication: GASTROOESOPHAGEAL REFLUX DISEASE
     Route: 048
     Dates: start: 2012, end: 2016
  58. FUROSEMIDE. [Concomitant]
     Active Substance: FUROSEMIDE
     Indication: CHRONIC KIDNEY DISEASE
  59. METHYLPREDNISOLONE. [Concomitant]
     Active Substance: METHYLPREDNISOLONE
  60. LIDOCAINE. [Concomitant]
     Active Substance: LIDOCAINE
  61. SERTRALINE [Concomitant]
     Active Substance: SERTRALINE HYDROCHLORIDE
  62. ZITHROMAX [Concomitant]
     Active Substance: AZITHROMYCIN DIHYDRATE
  63. ZINC. [Concomitant]
     Active Substance: ZINC
  64. FLONASE [Concomitant]
     Active Substance: FLUTICASONE PROPIONATE
  65. BENTYL [Concomitant]
     Active Substance: DICYCLOMINE HYDROCHLORIDE
  66. VICODIN [Concomitant]
     Active Substance: ACETAMINOPHEN\HYDROCODONE BITARTRATE
  67. MAGNESIUM OXIDE. [Concomitant]
     Active Substance: MAGNESIUM OXIDE
  68. POTASSIUM PHOSPHATE [Concomitant]
     Active Substance: POTASSIUM PHOSPHATE

REACTIONS (3)
  - Renal failure [Unknown]
  - Chronic kidney disease [Not Recovered/Not Resolved]
  - Acute kidney injury [Not Recovered/Not Resolved]

NARRATIVE: CASE EVENT DATE: 20140327
